FAERS Safety Report 7500182-9 (Version None)
Quarter: 2011Q2

REPORT INFORMATION
  Report Type: 
  Country: None (occurrence: None)
  Receive Date: 20110524
  Receipt Date: 20100412
  Transmission Date: 20111010
  Serious: No
  Sender: FDA-Public Use
  Company Number: US-NOVEN-ALL1-2010-02174

PATIENT

DRUGS (4)
  1. RITALIN [Concomitant]
     Dosage: 5 MG, 1X/DAY:QD
     Route: 048
  2. CLONIDINE [Concomitant]
     Dosage: UNK 1 1/2 .1MG TABLETS AT NIGHT
     Route: 048
     Dates: start: 20070101
  3. PROZAC                             /00724401/ [Concomitant]
     Dosage: 10 MG, 1X/DAY:QD
     Route: 048
     Dates: start: 20080101
  4. DAYTRANA [Suspect]
     Dosage: 30 MG, 1X/DAY:QD
     Route: 062
     Dates: start: 20090501

REACTIONS (7)
  - DRUG INEFFECTIVE [None]
  - APPLICATION SITE PAIN [None]
  - WRONG TECHNIQUE IN DRUG USAGE PROCESS [None]
  - OFF LABEL USE [None]
  - APPLICATION SITE IRRITATION [None]
  - PRODUCT QUALITY ISSUE [None]
  - APPLICATION SITE ERYTHEMA [None]
